FAERS Safety Report 16156838 (Version 4)
Quarter: 2019Q4

REPORT INFORMATION
  Report Type: Report from Study
  Country: CA (occurrence: CA)
  Receive Date: 20190404
  Receipt Date: 20191113
  Transmission Date: 20200122
  Serious: Yes (Other)
  Sender: FDA-Public Use
  Company Number: PHHY2019CA043807

PATIENT
  Sex: Male

DRUGS (2)
  1. COSENTYX [Suspect]
     Active Substance: SECUKINUMAB
     Indication: PSORIATIC ARTHROPATHY
     Dosage: 150 MG, QW (0,1,2 AND 3)
     Route: 058
     Dates: start: 20190128
  2. COSENTYX [Suspect]
     Active Substance: SECUKINUMAB
     Dosage: 150 MG, QMO
     Route: 058
     Dates: start: 20190325

REACTIONS (12)
  - Therapeutic response shortened [Unknown]
  - Ear infection [Unknown]
  - Injection site haemorrhage [Unknown]
  - Pain [Unknown]
  - Lower respiratory tract infection [Unknown]
  - Tenderness [Unknown]
  - Arthralgia [Unknown]
  - Depression [Unknown]
  - Sinusitis [Unknown]
  - Psoriatic arthropathy [Unknown]
  - Injection site pain [Unknown]
  - Myalgia [Unknown]
